FAERS Safety Report 8575307-7 (Version None)
Quarter: 2012Q3

REPORT INFORMATION
  Report Type: 
  Country: None (occurrence: None)
  Receive Date: 20120807
  Receipt Date: 20120803
  Transmission Date: 20120928
  Serious: No
  Sender: FDA-Public Use
  Company Number: US-PFIZER INC-2012189438

PATIENT
  Age: 36 Year
  Sex: Female
  Weight: 74.83 kg

DRUGS (1)
  1. LYRICA [Suspect]
     Indication: FIBROMYALGIA
     Dosage: 50 MG, 2X/DAY
     Route: 048
     Dates: start: 20120401, end: 20120701

REACTIONS (5)
  - SOMNOLENCE [None]
  - POLLAKIURIA [None]
  - ABDOMINAL DISCOMFORT [None]
  - FATIGUE [None]
  - OEDEMA PERIPHERAL [None]
